FAERS Safety Report 6754155-4 (Version None)
Quarter: 2010Q2

REPORT INFORMATION
  Report Type: 
  Country: None (occurrence: None)
  Receive Date: 20100603
  Receipt Date: 20100520
  Transmission Date: 20101027
  Serious: Yes (Other)
  Sender: FDA-Public Use
  Company Number: PHFR2010GB00729

PATIENT
  Age: 68 Year
  Sex: Male
  Weight: 79.4 kg

DRUGS (5)
  1. CYCLOSPORINE [Suspect]
     Indication: SYSTEMIC LUPUS ERYTHEMATOSUS
     Dosage: 50 MG/DAY
     Route: 048
  2. MABTHERA [Suspect]
     Indication: SYSTEMIC LUPUS ERYTHEMATOSUS
     Dosage: 750 MG, UNK
     Route: 042
     Dates: start: 20070101
  3. MABTHERA [Suspect]
     Dosage: 1000 MG, UNK
     Route: 042
     Dates: start: 20100413, end: 20100413
  4. HYDROXYCHLOROQUINE SULFATE [Concomitant]
     Dosage: 200 MG, UNK
     Route: 048
  5. PREDNISOLONE [Concomitant]
     Dosage: 5 MG, UNK
     Route: 048

REACTIONS (5)
  - BLOOD IMMUNOGLOBULIN A DECREASED [None]
  - BLOOD IMMUNOGLOBULIN G DECREASED [None]
  - BLOOD IMMUNOGLOBULIN M DECREASED [None]
  - IMMUNODEFICIENCY [None]
  - LOWER RESPIRATORY TRACT INFECTION [None]
